FAERS Safety Report 5285729-8 (Version None)
Quarter: 2007Q1

REPORT INFORMATION
  Report Type: 
  Country: None (occurrence: None)
  Receive Date: 20070126
  Receipt Date: 20061006
  Transmission Date: 20070707
  Serious: No
  Sender: FDA-Public Use
  Company Number: 2006CT000783

PATIENT
  Age: 38 Year
  Sex: Female
  Weight: 36.2878 kg

DRUGS (4)
  1. VENTAVIS [Suspect]
     Indication: PULMONARY HYPERTENSION
     Dosage: SEE IMAGE
     Route: 055
     Dates: start: 20061005, end: 20061006
  2. VENTAVIS [Suspect]
     Indication: PULMONARY HYPERTENSION
     Dosage: SEE IMAGE
     Route: 055
     Dates: start: 20061006
  3. LASIX [Concomitant]
  4. SEREVENT [Concomitant]

REACTIONS (2)
  - BREATH SOUNDS ABNORMAL [None]
  - TACHYCARDIA [None]
